FAERS Safety Report 4305074-4 (Version None)
Quarter: 2004Q1

REPORT INFORMATION
  Report Type: 
  Country: None (occurrence: None)
  Receive Date: 20040226
  Receipt Date: 20040223
  Transmission Date: 20041129
  Serious: Yes (Other)
  Sender: FDA-Public Use
  Company Number: CA-GLAXOSMITHKLINE-A0499469A

PATIENT

DRUGS (1)
  1. PAXIL [Suspect]
     Indication: DEPRESSION
     Route: 048

REACTIONS (26)
  - AGITATION [None]
  - ANXIETY [None]
  - ASTHENIA [None]
  - ASTHENOPIA [None]
  - CHILLS [None]
  - COORDINATION ABNORMAL [None]
  - CRYING [None]
  - DECREASED APPETITE [None]
  - DEPENDENCE [None]
  - DISTURBANCE IN ATTENTION [None]
  - DIZZINESS [None]
  - DRUG WITHDRAWAL SYNDROME [None]
  - FATIGUE [None]
  - HOT FLUSH [None]
  - HYPERHIDROSIS [None]
  - INFLUENZA [None]
  - INSOMNIA [None]
  - IRRITABILITY [None]
  - LETHARGY [None]
  - NAUSEA [None]
  - NIGHTMARE [None]
  - PARAESTHESIA [None]
  - SEXUAL DYSFUNCTION [None]
  - SLEEP DISORDER [None]
  - SOMNOLENCE [None]
  - VERTIGO [None]
